FAERS Safety Report 5787057-0 (Version None)
Quarter: 2008Q2

REPORT INFORMATION
  Report Type: 
  Country: None (occurrence: None)
  Receive Date: 20080623
  Receipt Date: 20080623
  Transmission Date: 20081010
  Serious: No
  Sender: FDA-Public Use
  Company Number: None

PATIENT
  Age: 31 Year
  Sex: Male
  Weight: 80.7403 kg

DRUGS (1)
  1. PROVENTAL HFA 90MCG PER ACTUATION SCHERING-PLOUGH [Suspect]
     Indication: ASTHMA
     Dosage: 2 PUFFS EVERY 4 HOURS
     Dates: start: 20061201, end: 20080622

REACTIONS (1)
  - DRUG INEFFECTIVE [None]
